FAERS Safety Report 7317287-8 (Version None)
Quarter: 2011Q1

REPORT INFORMATION
  Report Type: 
  Country: None (occurrence: None)
  Receive Date: 20110226
  Receipt Date: 20101020
  Transmission Date: 20110831
  Serious: No
  Sender: FDA-Public Use
  Company Number: US-ALLERGAN-1013488US

PATIENT
  Age: 16 Year
  Sex: Female

DRUGS (1)
  1. BOTOXA? [Suspect]
     Indication: HYPERHIDROSIS
     Dosage: 80 UNITS, SINGLE
     Route: 030
     Dates: start: 20101011, end: 20101011

REACTIONS (6)
  - CONTUSION [None]
  - OEDEMA PERIPHERAL [None]
  - DERMATITIS ALLERGIC [None]
  - MUSCULAR WEAKNESS [None]
  - THERAPEUTIC RESPONSE DECREASED [None]
  - PAIN IN EXTREMITY [None]
